FAERS Safety Report 13133138 (Version 2)
Quarter: 2017Q1

REPORT INFORMATION
  Report Type: Report from Study
  Country: GB (occurrence: GB)
  Receive Date: 20170120
  Receipt Date: 20170126
  Transmission Date: 20170428
  Serious: Yes (Other)
  Sender: FDA-Public Use
  Company Number: GB-ROCHE-1881778

PATIENT
  Age: 92 Year
  Sex: Male
  Weight: 56.1 kg

DRUGS (4)
  1. CHLORPHENIRAMINE. [Concomitant]
     Active Substance: CHLORPHENIRAMINE
  2. PARACETAMOL [Concomitant]
     Active Substance: ACETAMINOPHEN
  3. RITUXIMAB [Suspect]
     Active Substance: RITUXIMAB
     Indication: B-CELL LYMPHOMA
     Dosage: DAY1 CYCLE 1. 28 DAYS
     Route: 042
     Dates: start: 20140625, end: 20140625
  4. RITUXIMAB [Suspect]
     Active Substance: RITUXIMAB
     Indication: B-CELL LYMPHOMA
     Dosage: 8 WEEKS
     Route: 058
     Dates: start: 20140730, end: 20161108

REACTIONS (2)
  - Second primary malignancy [Not Recovered/Not Resolved]
  - Pancreatic neoplasm [Not Recovered/Not Resolved]

NARRATIVE: CASE EVENT DATE: 20170111
